FAERS Safety Report 14379690 (Version 6)
Quarter: 2018Q2

REPORT INFORMATION
  Report Type: Report from Study
  Country: ES (occurrence: ES)
  Receive Date: 20180112
  Receipt Date: 20180611
  Transmission Date: 20180711
  Serious: Yes (Hospitalization)
  Sender: FDA-Public Use
  Company Number: ES-ROCHE-1993450

PATIENT
  Age: 60 Year
  Sex: Female
  Weight: 57 kg

DRUGS (12)
  1. LORAZEPAM. [Concomitant]
     Active Substance: LORAZEPAM
     Indication: ANXIETY
     Route: 048
     Dates: start: 20171005
  2. ATEZOLIZUMAB. [Suspect]
     Active Substance: ATEZOLIZUMAB
     Indication: MALIGNANT URINARY TRACT NEOPLASM
     Dosage: DATE OF MOST RECENT DOSE PRIOR TO SAE ONSET: 23/AUG/2017.
     Route: 042
     Dates: start: 20170802
  3. PARACETAMOL [Concomitant]
     Active Substance: ACETAMINOPHEN
     Indication: URINARY TRACT INFECTION
     Route: 042
     Dates: start: 20170814, end: 20170816
  4. PARACETAMOL [Concomitant]
     Active Substance: ACETAMINOPHEN
     Route: 048
     Dates: start: 20170928
  5. SPECTRACEF (SPAIN) [Concomitant]
     Indication: URINARY TRACT INFECTION
     Route: 048
     Dates: start: 20170816, end: 20170823
  6. PARACETAMOL [Concomitant]
     Active Substance: ACETAMINOPHEN
     Indication: PAIN
     Route: 042
     Dates: start: 20170921
  7. SEGURIL [Concomitant]
     Active Substance: FUROSEMIDE
     Indication: PROPHYLAXIS
     Route: 048
     Dates: start: 20170928
  8. CEFTRIAXONE. [Concomitant]
     Active Substance: CEFTRIAXONE
     Indication: URINARY TRACT INFECTION
     Route: 042
     Dates: start: 20170814, end: 20170816
  9. IBUPROFEN. [Concomitant]
     Active Substance: IBUPROFEN
     Indication: URINARY TRACT INFECTION
     Route: 048
     Dates: start: 20170816, end: 20170823
  10. PARACETAMOL [Concomitant]
     Active Substance: ACETAMINOPHEN
     Indication: DYSPNOEA
     Route: 048
     Dates: start: 20170816, end: 20170823
  11. NOLOTIL [Concomitant]
     Indication: URINARY TRACT INFECTION
     Route: 042
     Dates: start: 20170814, end: 20170816
  12. OMEPRAZOL [Concomitant]
     Active Substance: OMEPRAZOLE
     Indication: PROPHYLAXIS
     Route: 048
     Dates: start: 20170814

REACTIONS (4)
  - Left ventricular dysfunction [Recovered/Resolved]
  - Hyperthyroidism [Recovered/Resolved]
  - Left ventricular failure [Recovered/Resolved]
  - Hypothyroidism [Not Recovered/Not Resolved]

NARRATIVE: CASE EVENT DATE: 20170909
